FAERS Safety Report 8301480-1 (Version None)
Quarter: 2012Q2

REPORT INFORMATION
  Report Type: 
  Country: None (occurrence: None)
  Receive Date: 20120420
  Receipt Date: 20120416
  Transmission Date: 20120825
  Serious: Yes (Death, Hospitalization, Other)
  Sender: FDA-Public Use
  Company Number: PHHY2011JP105779

PATIENT
  Sex: Male
  Weight: 66 kg

DRUGS (6)
  1. ATELEC [Concomitant]
     Indication: HYPERTENSION
     Dosage: 20 MG
     Route: 048
     Dates: start: 20090715, end: 20110826
  2. ALLOPURINOL [Concomitant]
     Dosage: 100 MG, UNK
     Route: 048
     Dates: start: 20051007, end: 20110826
  3. SELBEX [Concomitant]
     Dosage: 100 MG
     Route: 048
     Dates: start: 20080609, end: 20110826
  4. ALISKIREN [Suspect]
     Indication: HYPERTENSION
     Dosage: 150 MG
     Route: 048
     Dates: start: 20101007, end: 20110826
  5. LIPIDIL [Concomitant]
     Dosage: 100 MG, UNK
     Route: 048
     Dates: start: 20100909, end: 20110826
  6. DIOVAN [Concomitant]
     Indication: HYPERTENSION
     Dosage: 160 MG, UNK
     Route: 048
     Dates: start: 20051007, end: 20110826

REACTIONS (6)
  - HAEMORRHAGE [None]
  - BLOOD CREATININE INCREASED [None]
  - HAEMOGLOBIN DECREASED [None]
  - RESPIRATORY ARREST [None]
  - BLOOD UREA INCREASED [None]
  - HAEMATOCRIT DECREASED [None]
